FAERS Safety Report 6899338-8 (Version None)
Quarter: 2010Q3

REPORT INFORMATION
  Report Type: 
  Country: None (occurrence: None)
  Receive Date: 20100802
  Receipt Date: 20090330
  Transmission Date: 20110219
  Serious: No
  Sender: FDA-Public Use
  Company Number: US-PFIZER INC-2009151425

PATIENT
  Age: 64 Year
  Sex: Male

DRUGS (3)
  1. AMLODIPINE BESYLATE [Suspect]
     Dosage: 10 MG, UNK
  2. ATENOLOL [Suspect]
  3. LEXAPRO [Suspect]

REACTIONS (4)
  - ABDOMINAL PAIN [None]
  - DRUG WITHDRAWAL SYNDROME [None]
  - MALAISE [None]
  - SOMNOLENCE [None]
